FAERS Safety Report 7356422-2 (Version None)
Quarter: 2011Q1

REPORT INFORMATION
  Report Type: 
  Country: None (occurrence: None)
  Receive Date: 20110316
  Receipt Date: 20110309
  Transmission Date: 20110831
  Serious: Yes (Other)
  Sender: FDA-Public Use
  Company Number: DE-GILEAD-2011-0037374

PATIENT
  Age: 37 Year
  Sex: Male

DRUGS (2)
  1. REYATAZ [Concomitant]
  2. TRUVADA [Suspect]
     Indication: PRODUCT USED FOR UNKNOWN INDICATION
     Dates: start: 20070701

REACTIONS (1)
  - OSTEONECROSIS [None]
